FAERS Safety Report 6085919-0 (Version None)
Quarter: 2009Q1

REPORT INFORMATION
  Report Type: 
  Country: None (occurrence: None)
  Receive Date: 20090217
  Receipt Date: 20080430
  Transmission Date: 20090719
  Serious: Yes (Other)
  Sender: FDA-Public Use
  Company Number: MC200800095

PATIENT
  Age: 50 Year
  Sex: Female
  Weight: 75.3 kg

DRUGS (3)
  1. ANGIOMAX [Suspect]
     Indication: PERCUTANEOUS CORONARY INTERVENTION
     Dosage: 0.75 MG/KG, BOLUS, INTRAVENOUS : 1.75 MG/KG, HR, INTRAVENOUS
     Route: 040
     Dates: start: 20080215, end: 20080215
  2. ANGIOMAX [Suspect]
     Indication: PERCUTANEOUS CORONARY INTERVENTION
     Dosage: 0.75 MG/KG, BOLUS, INTRAVENOUS : 1.75 MG/KG, HR, INTRAVENOUS
     Route: 040
     Dates: start: 20080215, end: 20080215
  3. ASPIRIN [Concomitant]

REACTIONS (1)
  - CATHETER THROMBOSIS [None]
